FAERS Safety Report 15455589 (Version 1)
Quarter: 2018Q3

REPORT INFORMATION
  Report Type: Spontaneous
  Country: US (occurrence: US)
  Receive Date: 20180925
  Receipt Date: 20180925
  Transmission Date: 20181010
  Serious: No
  Sender: FDA-Public Use
  Company Number: None

PATIENT
  Age: 58 Year
  Sex: Female
  Weight: 63.96 kg

DRUGS (3)
  1. METHOTREXATE (METHOTREXATE SODIUM) [Suspect]
     Active Substance: METHOTREXATE SODIUM
     Dosage: ?          OTHER DOSE:8 TABLETS;OTHER FREQUENCY:ONCE WEEKLY;?
     Route: 048
     Dates: start: 201807
  2. METHOTREXATE TABLET [Suspect]
     Active Substance: METHOTREXATE
  3. HUMIRA [Suspect]
     Active Substance: ADALIMUMAB
     Indication: RHEUMATOID ARTHRITIS
     Dosage: ?          OTHER FREQUENCY:EVRY 2WKS AS DIREC;?
     Route: 058
     Dates: start: 201807

REACTIONS (1)
  - Muscle spasms [None]
